FAERS Safety Report 10384327 (Version 1)
Quarter: 2014Q1

REPORT INFORMATION
  Report Type: Spontaneous
  Country: US (occurrence: None)
  Receive Date: 20140306
  Receipt Date: 20140306
  Transmission Date: 20141002
  Serious: Yes (Hospitalization)
  Sender: FDA-Public Use
  Company Number: 163-21880-13052760

PATIENT
  Age: 63 Year
  Sex: Female

DRUGS (2)
  1. REVLIMIB (LENALIDOMIDE) (25 MILLIGRAM, CAPSULES) [Suspect]
     Indication: PLASMA CELL MYELOMA
     Route: 048
     Dates: start: 20100510
  2. ANTIBIOTICS [Concomitant]

REACTIONS (2)
  - Pneumonia [None]
  - Malaise [None]
